FAERS Safety Report 9978099 (Version 1)
Quarter: 2014Q1

REPORT INFORMATION
  Report Type: Report from Study
  Country: US (occurrence: US)
  Receive Date: 20140306
  Receipt Date: 20140306
  Transmission Date: 20141002
  Serious: No
  Sender: FDA-Public Use
  Company Number: US-ABBVIE-13P-163-1060176-00

PATIENT
  Age: 38 Year
  Sex: Female

DRUGS (2)
  1. LUPRON DEPOT [Suspect]
     Indication: PRODUCT USED FOR UNKNOWN INDICATION
     Route: 030
  2. LUPRON DEPOT [Suspect]
     Dosage: 3 INJECTIONS
     Route: 050
     Dates: start: 200907

REACTIONS (2)
  - Uterine disorder [Not Recovered/Not Resolved]
  - Infertility female [Not Recovered/Not Resolved]
